FAERS Safety Report 22339895 (Version 1)
Quarter: 2023Q2

REPORT INFORMATION
  Report Type: Spontaneous
  Country: FR (occurrence: FR)
  Receive Date: 20230518
  Receipt Date: 20230518
  Transmission Date: 20230721
  Serious: Yes (Hospitalization)
  Sender: FDA-Public Use
  Company Number: None

PATIENT
  Age: 72 Year
  Sex: Male
  Weight: 77 kg

DRUGS (2)
  1. AVAPRITINIB [Suspect]
     Active Substance: AVAPRITINIB
     Indication: Gastrointestinal stromal tumour
     Dosage: 300 MG 03/02 AU 02/03?200MG 15/04 AU 27/04
     Route: 048
     Dates: start: 20200203, end: 20200427
  2. AVAPRITINIB [Suspect]
     Active Substance: AVAPRITINIB
     Route: 048
     Dates: start: 20200415

REACTIONS (6)
  - Depression [Recovering/Resolving]
  - Asthenia [Recovered/Resolved]
  - Hemiparesis [Recovering/Resolving]
  - Oedema [Recovered/Resolved]
  - Atrioventricular block [Recovered/Resolved]
  - Amnestic disorder [Recovering/Resolving]

NARRATIVE: CASE EVENT DATE: 20200401
